FAERS Safety Report 9407628 (Version 1)
Quarter: 2013Q1

REPORT INFORMATION
  Report Type: Spontaneous
  Country: US (occurrence: None)
  Receive Date: 20130308
  Receipt Date: 20130308
  Transmission Date: 20140127
  Serious: Yes (Life-Threatening, Hospitalization)
  Sender: FDA-Public Use
  Company Number: 144169-2

PATIENT
  Age: 48 Year
  Sex: Male
  Weight: 66 kg

DRUGS (1)
  1. LEUCOVORIN CALCIUM FOR INJ. 50MG [Suspect]
     Indication: COLORECTAL CANCER METASTATIC
     Dosage: DAY ONE EVERY 14 DAYS
     Route: 042
     Dates: start: 20121024, end: 20121218

REACTIONS (16)
  - Malignant neoplasm progression [None]
  - Colorectal cancer metastatic [None]
  - Cholinergic syndrome [None]
  - Toxicity to various agents [None]
  - Fatigue [None]
  - Nausea [None]
  - Vomiting [None]
  - Diarrhoea [None]
  - Hydrocholecystis [None]
  - Large intestine perforation [None]
  - Peritonitis [None]
  - Small intestinal perforation [None]
  - Mechanical ileus [None]
  - Metastases to peritoneum [None]
  - Sepsis [None]
  - Cardiovascular disorder [None]
